FAERS Safety Report 23084696 (Version 2)
Quarter: 2023Q4

REPORT INFORMATION
  Report Type: Report from Study
  Country: US (occurrence: None)
  Receive Date: 20231019
  Receipt Date: 20231204
  Transmission Date: 20240110
  Serious: Yes (Death, Other)
  Sender: FDA-Public Use
  Company Number: 2023A237374

PATIENT
  Age: 4000 Week
  Sex: Female

DRUGS (1)
  1. IMFINZI [Suspect]
     Active Substance: DURVALUMAB
     Indication: Hepatocellular carcinoma
     Dosage: 500MG/10ML
     Route: 042
     Dates: start: 202303

REACTIONS (1)
  - Death [Fatal]

NARRATIVE: CASE EVENT DATE: 20231012
